FAERS Safety Report 6844384-3 (Version None)
Quarter: 2010Q3

REPORT INFORMATION
  Report Type: 
  Country: None (occurrence: None)
  Receive Date: 20100715
  Receipt Date: 20100701
  Transmission Date: 20110219
  Serious: Yes (Other)
  Sender: FDA-Public Use
  Company Number: CZ-CELGENEUS-217-21880-10070010

PATIENT
  Age: 53 Year
  Sex: Male

DRUGS (8)
  1. REVLIMID [Suspect]
     Indication: MULTIPLE MYELOMA
     Route: 048
     Dates: start: 20100415, end: 20100604
  2. DEXAMETHASONE [Concomitant]
     Indication: MULTIPLE MYELOMA
     Route: 065
     Dates: start: 20100528, end: 20100604
  3. HELICID [Concomitant]
     Indication: PRODUCT USED FOR UNKNOWN INDICATION
     Route: 065
  4. MILURIT [Concomitant]
     Indication: PRODUCT USED FOR UNKNOWN INDICATION
     Route: 065
  5. BONEFOS [Concomitant]
     Indication: PRODUCT USED FOR UNKNOWN INDICATION
     Route: 065
  6. KOMBI-KALZ [Concomitant]
     Indication: PRODUCT USED FOR UNKNOWN INDICATION
     Route: 065
  7. CLEXANE [Concomitant]
     Indication: PRODUCT USED FOR UNKNOWN INDICATION
     Route: 065
  8. TRANSTEC [Concomitant]
     Indication: PRODUCT USED FOR UNKNOWN INDICATION
     Route: 065

REACTIONS (3)
  - EOSINOPHILIA [None]
  - PYREXIA [None]
  - SKIN EXFOLIATION [None]
